FAERS Safety Report 23089633 (Version 2)
Quarter: 2023Q4

REPORT INFORMATION
  Report Type: Spontaneous
  Country: US (occurrence: US)
  Receive Date: 20231020
  Receipt Date: 20231211
  Transmission Date: 20240109
  Serious: No
  Sender: FDA-Public Use
  Company Number: US-GSKCCFUS-Case-01833349_AE-102471

PATIENT
  Sex: Female

DRUGS (1)
  1. TRELEGY ELLIPTA [Suspect]
     Active Substance: FLUTICASONE FUROATE\UMECLIDINIUM BROMIDE\VILANTEROL TRIFENATATE
     Indication: Product used for unknown indication
     Dosage: 1 PUFF(S), BID, 100/62.5/25
     Route: 055
     Dates: start: 20230927

REACTIONS (4)
  - Product dispensing error [Unknown]
  - Extra dose administered [Unknown]
  - Product dose omission issue [Unknown]
  - Product complaint [Unknown]
